FAERS Safety Report 8609418-4 (Version None)
Quarter: 2012Q3

REPORT INFORMATION
  Report Type: 
  Country: None (occurrence: None)
  Receive Date: 20120821
  Receipt Date: 20120801
  Transmission Date: 20120928
  Serious: No
  Sender: FDA-Public Use
  Company Number: US-BAYER-2012-080889

PATIENT
  Age: 58 Year

DRUGS (1)
  1. AVELOX [Suspect]

REACTIONS (1)
  - VOMITING [None]
